FAERS Safety Report 10301185 (Version 1)
Quarter: 2014Q3

REPORT INFORMATION
  Report Type: Spontaneous
  Country: US (occurrence: None)
  Receive Date: 20140708
  Receipt Date: 20140708
  Transmission Date: 20150326
  Serious: Yes (Other)
  Sender: FDA-Public Use
  Company Number: None

PATIENT
  Age: 51 Year
  Sex: Male
  Weight: 117.3 kg

DRUGS (3)
  1. PEGINTRON [Concomitant]
     Active Substance: PEGINTERFERON ALFA-2B
  2. SOVALDI [Concomitant]
     Active Substance: SOFOSBUVIR
  3. RIBASPHERE [Suspect]
     Active Substance: RIBAVIRIN
     Indication: HEPATITIS C
     Dosage: 400MG IN AM; 600 MG IN PM DAILY PO
     Route: 048
     Dates: start: 20140620

REACTIONS (1)
  - Suicidal ideation [None]

NARRATIVE: CASE EVENT DATE: 20140702
